FAERS Safety Report 10654090 (Version 3)
Quarter: 2016Q1

REPORT INFORMATION
  Report Type: Report from Study
  Country: DE (occurrence: DE)
  Receive Date: 20141216
  Receipt Date: 20160308
  Transmission Date: 20160525
  Serious: Yes (Hospitalization)
  Sender: FDA-Public Use
  Company Number: DE-ABBVIE-14K-062-1319543-00

PATIENT
  Age: 36 Year
  Sex: Female
  Weight: 65 kg

DRUGS (2)
  1. HUMIRA [Suspect]
     Active Substance: ADALIMUMAB
     Route: 058
     Dates: start: 201411, end: 201601
  2. HUMIRA [Suspect]
     Active Substance: ADALIMUMAB
     Indication: RHEUMATOID ARTHRITIS
     Route: 058
     Dates: start: 20130601

REACTIONS (8)
  - Hypogeusia [Recovered/Resolved]
  - Sinusitis [Recovering/Resolving]
  - Nasal polyps [Recovered/Resolved]
  - Chronic sinusitis [Recovering/Resolving]
  - Vertigo positional [Not Recovered/Not Resolved]
  - Olfactory nerve disorder [Recovered/Resolved]
  - Vertigo [Not Recovered/Not Resolved]
  - Chronic sinusitis [Recovered/Resolved]

NARRATIVE: CASE EVENT DATE: 201410
